FAERS Safety Report 6146555-0 (Version None)
Quarter: 2009Q2

REPORT INFORMATION
  Report Type: 
  Country: None (occurrence: None)
  Receive Date: 20090407
  Receipt Date: 20090323
  Transmission Date: 20091009
  Serious: Yes (Hospitalization)
  Sender: FDA-Public Use
  Company Number: US-MERCK-0903USA05629

PATIENT
  Age: 81 Year
  Sex: Female

DRUGS (2)
  1. PRINIVIL [Suspect]
     Indication: VASOSPASM
     Route: 048
  2. ASPIRIN [Suspect]
     Route: 065

REACTIONS (7)
  - ACUTE RESPIRATORY FAILURE [None]
  - ANGIOEDEMA [None]
  - BLOOD GLUCOSE INCREASED [None]
  - DRUG ADMINISTRATION ERROR [None]
  - SUPRAVENTRICULAR TACHYCARDIA [None]
  - TREATMENT NONCOMPLIANCE [None]
  - WHITE BLOOD CELL COUNT INCREASED [None]
